FAERS Safety Report 6823512-X (Version None)
Quarter: 2010Q3

REPORT INFORMATION
  Report Type: 
  Country: None (occurrence: None)
  Receive Date: 20100708
  Receipt Date: 20090205
  Transmission Date: 20110219
  Serious: No
  Sender: FDA-Public Use
  Company Number: US-PFIZER INC-2009167070

PATIENT
  Age: 42 Year
  Sex: Female
  Weight: 88.435 kg

DRUGS (3)
  1. ZITHROMAX [Suspect]
     Indication: MYCOTIC ALLERGY
     Dosage: UNK
     Dates: start: 20081101
  2. ASTELIN [Concomitant]
     Dosage: UNK
  3. HYDROCHLOROTHIAZIDE [Concomitant]
     Dosage: UNK

REACTIONS (1)
  - ARTHRALGIA [None]
